FAERS Safety Report 5283053-0 (Version None)
Quarter: 2007Q1

REPORT INFORMATION
  Report Type: 
  Country: None (occurrence: None)
  Receive Date: 20070328
  Receipt Date: 20070328
  Transmission Date: 20070707
  Serious: Yes (Other)
  Sender: FDA-Public Use
  Company Number: None

PATIENT
  Age: 45 Year
  Sex: Female
  Weight: 61.2356 kg

DRUGS (1)
  1. LEVAQUIN [Suspect]
     Indication: SINUSITIS
     Dosage: NORMAL DOSE FOR SINUSITIS   2 TIME PER DAY  PO
     Route: 048
     Dates: start: 20050315, end: 20050325

REACTIONS (1)
  - TENDONITIS [None]
